FAERS Safety Report 7167541-8 (Version None)
Quarter: 2010Q4

REPORT INFORMATION
  Report Type: 
  Country: None (occurrence: None)
  Receive Date: 20101216
  Receipt Date: 20100317
  Transmission Date: 20110411
  Serious: No
  Sender: FDA-Public Use
  Company Number: A0850589A

PATIENT
  Age: 85 Year
  Sex: Male

DRUGS (1)
  1. NICOTINE POLACRILEX [Suspect]
     Indication: TOBACCO USER

REACTIONS (3)
  - DRUG ADMINISTRATION ERROR [None]
  - INTENTIONAL DRUG MISUSE [None]
  - NICOTINE DEPENDENCE [None]
